FAERS Safety Report 9964044 (Version 4)
Quarter: 2014Q3

REPORT INFORMATION
  Report Type: Report from Study
  Country: JP (occurrence: JP)
  Receive Date: 20140305
  Receipt Date: 20140811
  Transmission Date: 20150326
  Serious: Yes (Other)
  Sender: FDA-Public Use
  Company Number: JP-GLAXOSMITHKLINE-B0923859A

PATIENT
  Age: 86 Year
  Sex: Female
  Weight: 51 kg

DRUGS (29)
  1. REVOLADE [Suspect]
     Active Substance: ELTROMBOPAG
     Indication: IMMUNE THROMBOCYTOPENIC PURPURA
     Route: 048
     Dates: start: 20130728, end: 20130812
  2. TERIBONE [Concomitant]
     Active Substance: TERIPARATIDE ACETATE
     Indication: BACK PAIN
     Dosage: 56.5MCG PER DAY
     Route: 058
     Dates: start: 20131205, end: 20131205
  3. MUCOSTA [Concomitant]
     Active Substance: REBAMIPIDE
     Indication: PROPHYLAXIS
     Route: 048
  4. MAGMITT [Concomitant]
     Active Substance: MAGNESIUM OXIDE
     Route: 048
     Dates: start: 20131031
  5. TERIBONE [Concomitant]
     Active Substance: TERIPARATIDE ACETATE
     Indication: BACK PAIN
     Dosage: 28.25MCG PER DAY
     Route: 058
     Dates: start: 20131107, end: 20131107
  6. PREDONINE [Suspect]
     Active Substance: PREDNISOLONE\PREDNISOLONE ACETATE\PREDNISOLONE SODIUM SUCCINATE
     Indication: IMMUNE THROMBOCYTOPENIC PURPURA
     Route: 048
     Dates: start: 20130801, end: 20130821
  7. MAGLAX [Concomitant]
     Active Substance: MAGNESIUM OXIDE
     Route: 048
  8. LOXONIN [Concomitant]
     Active Substance: LOXOPROFEN SODIUM
     Indication: BACK PAIN
     Route: 048
  9. PREDONINE [Suspect]
     Active Substance: PREDNISOLONE\PREDNISOLONE ACETATE\PREDNISOLONE SODIUM SUCCINATE
     Indication: IMMUNE THROMBOCYTOPENIC PURPURA
     Route: 048
     Dates: start: 20130829, end: 20130904
  10. PARIET [Concomitant]
     Active Substance: RABEPRAZOLE SODIUM
     Indication: PROPHYLAXIS
     Route: 048
  11. FERROMIA [Concomitant]
     Active Substance: FERROUS CITRATE
     Route: 048
     Dates: start: 20140703
  12. REVOLADE [Suspect]
     Active Substance: ELTROMBOPAG
     Indication: IMMUNE THROMBOCYTOPENIC PURPURA
     Route: 048
     Dates: start: 20130813, end: 20130826
  13. REVOLADE [Suspect]
     Active Substance: ELTROMBOPAG
     Indication: IMMUNE THROMBOCYTOPENIC PURPURA
     Route: 048
     Dates: start: 20131008
  14. TERIBONE [Concomitant]
     Active Substance: TERIPARATIDE ACETATE
     Indication: BACK PAIN
     Dosage: 56.5MCG PER DAY
     Route: 058
     Dates: start: 20131114, end: 20131114
  15. TERIBONE [Concomitant]
     Active Substance: TERIPARATIDE ACETATE
     Indication: BACK PAIN
     Dosage: 56.5MCG PER DAY
     Route: 058
     Dates: start: 20131121, end: 20131121
  16. TERIBONE [Concomitant]
     Active Substance: TERIPARATIDE ACETATE
     Indication: BACK PAIN
     Dosage: 56.5MCG PER DAY
     Route: 058
     Dates: start: 20131212, end: 20131212
  17. TERIBONE [Concomitant]
     Active Substance: TERIPARATIDE ACETATE
     Indication: BACK PAIN
     Dosage: 56.5MCG PER DAY
     Route: 058
     Dates: start: 20131226, end: 20131226
  18. REVOLADE [Suspect]
     Active Substance: ELTROMBOPAG
     Indication: IMMUNE THROMBOCYTOPENIC PURPURA
     Route: 048
     Dates: start: 20130827, end: 20130924
  19. PREDONINE [Suspect]
     Active Substance: PREDNISOLONE\PREDNISOLONE ACETATE\PREDNISOLONE SODIUM SUCCINATE
     Indication: IMMUNE THROMBOCYTOPENIC PURPURA
     Route: 048
     Dates: start: 20130822, end: 20130828
  20. PREDONINE [Suspect]
     Active Substance: PREDNISOLONE\PREDNISOLONE ACETATE\PREDNISOLONE SODIUM SUCCINATE
     Indication: IMMUNE THROMBOCYTOPENIC PURPURA
     Route: 048
     Dates: start: 20130912, end: 20131008
  21. TAKEPRON [Concomitant]
     Active Substance: LANSOPRAZOLE
     Indication: PROPHYLAXIS
     Route: 048
     Dates: start: 20131128
  22. CHINESE MEDICINE [Concomitant]
     Active Substance: UNSPECIFIED INGREDIENT
     Route: 048
     Dates: start: 201401
  23. LYRICA [Concomitant]
     Active Substance: PREGABALIN
     Indication: BACK PAIN
     Route: 048
     Dates: start: 20131107, end: 20131113
  24. PREDONINE [Suspect]
     Active Substance: PREDNISOLONE\PREDNISOLONE ACETATE\PREDNISOLONE SODIUM SUCCINATE
     Indication: IMMUNE THROMBOCYTOPENIC PURPURA
     Route: 048
     Dates: end: 20130731
  25. PREDONINE [Suspect]
     Active Substance: PREDNISOLONE\PREDNISOLONE ACETATE\PREDNISOLONE SODIUM SUCCINATE
     Indication: IMMUNE THROMBOCYTOPENIC PURPURA
     Route: 048
     Dates: start: 20130905, end: 20130911
  26. PREDONINE [Suspect]
     Active Substance: PREDNISOLONE\PREDNISOLONE ACETATE\PREDNISOLONE SODIUM SUCCINATE
     Indication: IMMUNE THROMBOCYTOPENIC PURPURA
     Route: 048
     Dates: start: 20131009, end: 20131030
  27. MEROPEN [Concomitant]
     Active Substance: MEROPENEM
     Route: 042
     Dates: start: 20130806, end: 20130814
  28. CHINESE MEDICINE [Concomitant]
     Active Substance: UNSPECIFIED INGREDIENT
     Route: 048
     Dates: start: 201401
  29. LYRICA [Concomitant]
     Active Substance: PREGABALIN
     Indication: BACK PAIN
     Route: 048
     Dates: start: 20131114, end: 20131120

REACTIONS (5)
  - Spondylitis [Recovering/Resolving]
  - Anaemia [Not Recovered/Not Resolved]
  - Arthralgia [Unknown]
  - White blood cell count decreased [Recovered/Resolved]
  - Femoral neck fracture [Recovered/Resolved]

NARRATIVE: CASE EVENT DATE: 20130806
